FAERS Safety Report 6400184-X (Version None)
Quarter: 2009Q4

REPORT INFORMATION
  Report Type: 
  Country: None (occurrence: None)
  Receive Date: 20091014
  Receipt Date: 20091005
  Transmission Date: 20100525
  Serious: Yes (Hospitalization, Other)
  Sender: FDA-Public Use
  Company Number: DE-BAYER-200932574GPV

PATIENT
  Age: 65 Year
  Sex: Female
  Weight: 60 kg

DRUGS (7)
  1. FLUDARA [Suspect]
     Indication: B-CELL LYMPHOMA
     Dosage: 3 TIMES
     Route: 042
     Dates: start: 20090201, end: 20090201
  2. FLUDARA [Suspect]
     Dosage: 3 TIMES
     Route: 042
     Dates: start: 20090316, end: 20090301
  3. ENDOXAN [Suspect]
     Indication: B-CELL LYMPHOMA
     Dosage: 3 TIMES
     Route: 042
     Dates: start: 20090201, end: 20090201
  4. ENDOXAN [Suspect]
     Dosage: 3 TIMES
     Route: 042
     Dates: start: 20090316, end: 20090301
  5. MABTHERA [Suspect]
     Indication: B-CELL LYMPHOMA
     Dosage: 6-10 MG (DAILY),
     Route: 042
     Dates: start: 20090201, end: 20090201
  6. MABTHERA [Suspect]
     Dosage: 6-10 MG
     Route: 042
     Dates: start: 20090316, end: 20090316
  7. COTRIM [Suspect]
     Indication: INFECTION PROPHYLAXIS
     Dosage: SINCE MONTHS

REACTIONS (5)
  - HAEMATOTOXICITY [None]
  - MYOPATHY [None]
  - NEUTROPENIA [None]
  - PERIPHERAL SENSORIMOTOR NEUROPATHY [None]
  - THROMBOCYTOPENIA [None]
